FAERS Safety Report 6600044-5 (Version None)
Quarter: 2010Q1

REPORT INFORMATION
  Report Type: 
  Country: None (occurrence: None)
  Receive Date: 20100224
  Receipt Date: 20100213
  Transmission Date: 20100710
  Serious: Yes (Other)
  Sender: FDA-Public Use
  Company Number: US-PFIZER INC-2010022124

PATIENT
  Sex: Female

DRUGS (4)
  1. LYRICA [Suspect]
     Indication: NEURALGIA
     Dosage: 50 MG, 1X/DAY
     Dates: start: 20091001
  2. LYRICA [Suspect]
     Indication: NERVE COMPRESSION
     Dosage: 100 MG, 2X/DAY
     Dates: end: 20100201
  3. LORAZEPAM [Concomitant]
     Dosage: UNK
  4. TEMAZEPAM [Concomitant]
     Dosage: UNK

REACTIONS (3)
  - GLOSSODYNIA [None]
  - PARAESTHESIA ORAL [None]
  - SURGERY [None]
